FAERS Safety Report 5352272-7 (Version None)
Quarter: 2007Q3

REPORT INFORMATION
  Report Type: 
  Country: None (occurrence: None)
  Receive Date: 20070611
  Receipt Date: 20070601
  Transmission Date: 20080115
  Serious: Yes (Hospitalization)
  Sender: FDA-Public Use
  Company Number: FR-AVENTIS-200711856FR

PATIENT
  Age: 14 Year
  Sex: Male
  Weight: 41 kg

DRUGS (5)
  1. CLAFORAN [Suspect]
     Route: 042
     Dates: start: 20070503, end: 20070509
  2. METOCLOPRAMIDE HCL [Suspect]
     Route: 042
     Dates: start: 20070502, end: 20070509
  3. OXACILLIN [Suspect]
     Route: 042
     Dates: start: 20070503, end: 20070505
  4. GENTAMICIN [Suspect]
     Route: 042
     Dates: start: 20070503, end: 20070509
  5. ACETAMINOPHEN [Suspect]
     Route: 042
     Dates: start: 20070502, end: 20070509

REACTIONS (2)
  - RASH MACULO-PAPULAR [None]
  - VASCULAR PURPURA [None]
